FAERS Safety Report 9743160 (Version 2)
Quarter: 2015Q3

REPORT INFORMATION
  Report Type: Spontaneous
  Country: US (occurrence: US)
  Receive Date: 20131210
  Receipt Date: 20150804
  Transmission Date: 20151125
  Serious: No
  Sender: FDA-Public Use
  Company Number: US-GILEAD-2009-0024421

PATIENT
  Age: 69 Year
  Sex: Female
  Weight: 88.45 kg

DRUGS (8)
  1. NEURONTIN [Concomitant]
     Active Substance: GABAPENTIN
  2. COUMADIN [Concomitant]
     Active Substance: WARFARIN SODIUM
  3. OXYGEN. [Concomitant]
     Active Substance: OXYGEN
  4. REVATIO [Concomitant]
     Active Substance: SILDENAFIL CITRATE
  5. DARVOCET-N 100 [Concomitant]
     Active Substance: ACETAMINOPHEN\PROPOXYPHENE NAPSYLATE
  6. ATIVAN [Concomitant]
     Active Substance: LORAZEPAM
  7. LETAIRIS [Suspect]
     Active Substance: AMBRISENTAN
     Indication: PULMONARY ARTERIAL HYPERTENSION
     Route: 048
     Dates: start: 20071031
  8. LASIX [Concomitant]
     Active Substance: FUROSEMIDE

REACTIONS (3)
  - Respiratory tract congestion [Unknown]
  - Infection [Unknown]
  - Dysgeusia [Unknown]
